FAERS Safety Report 12550906 (Version 2)
Quarter: 2016Q3

REPORT INFORMATION
  Report Type: Spontaneous
  Country: US (occurrence: US)
  Receive Date: 20160712
  Receipt Date: 20160727
  Transmission Date: 20161109
  Serious: Yes (Other)
  Sender: FDA-Public Use
  Company Number: PHEH2016US016498

PATIENT
  Age: 54 Year
  Sex: Male
  Weight: 77.3 kg

DRUGS (1)
  1. COSENTYX [Suspect]
     Active Substance: SECUKINUMAB
     Indication: PSORIASIS
     Dosage: 300 MG, QW4
     Route: 058
     Dates: start: 20160315

REACTIONS (5)
  - Cough [Unknown]
  - Dyspepsia [Unknown]
  - Dysphagia [Unknown]
  - Oesophageal obstruction [Unknown]
  - Gastrooesophageal reflux disease [Unknown]

NARRATIVE: CASE EVENT DATE: 201606
